FAERS Safety Report 18497576 (Version 5)
Quarter: 2022Q1

REPORT INFORMATION
  Report Type: Report from Study
  Country: US (occurrence: US)
  Receive Date: 20201112
  Receipt Date: 20220325
  Transmission Date: 20220424
  Serious: Yes (Other)
  Sender: FDA-Public Use
  Company Number: NVSC2020US303462

PATIENT
  Sex: Female

DRUGS (1)
  1. MAYZENT [Suspect]
     Active Substance: SIPONIMOD
     Indication: Multiple sclerosis
     Dosage: 2 MG, QD
     Route: 048

REACTIONS (8)
  - Deafness [Unknown]
  - Back pain [Unknown]
  - Balance disorder [Unknown]
  - Migraine [Unknown]
  - Hypoacusis [Unknown]
  - Vomiting [Unknown]
  - COVID-19 [Unknown]
  - Pyrexia [Recovered/Resolved]
